FAERS Safety Report 5041705-1 (Version None)
Quarter: 2006Q2

REPORT INFORMATION
  Report Type: 
  Country: None (occurrence: None)
  Receive Date: 20060630
  Receipt Date: 20060615
  Transmission Date: 20061013
  Serious: Yes (Hospitalization, Congenital Anomaly)
  Sender: FDA-Public Use
  Company Number: 2006-DE-03158GD

PATIENT
  Sex: Male

DRUGS (4)
  1. ZIDOVUDINE [Suspect]
     Dosage: IU
     Route: 015
  2. COMBIVIR [Suspect]
     Dosage: IU
     Route: 015
  3. HAART (ANTIVIRALS FOR SYSTEMIC USE) [Suspect]
     Dosage: IU
     Route: 015
  4. STEROIDS (CORTICOSTEROIDS) [Concomitant]

REACTIONS (9)
  - CAESAREAN SECTION [None]
  - CARDIAC SEPTAL DEFECT [None]
  - DRUG EXPOSURE DURING PREGNANCY [None]
  - FOETAL ALCOHOL SYNDROME [None]
  - NEONATAL RESPIRATORY DISTRESS SYNDROME [None]
  - PREMATURE BABY [None]
  - PREMATURE RUPTURE OF MEMBRANES [None]
  - PYLORIC STENOSIS [None]
  - RETINOPATHY OF PREMATURITY [None]
